FAERS Safety Report 5663286-1 (Version None)
Quarter: 2008Q1

REPORT INFORMATION
  Report Type: 
  Country: None (occurrence: None)
  Receive Date: 20080310
  Receipt Date: 20080225
  Transmission Date: 20080703
  Serious: Yes (Hospitalization)
  Sender: FDA-Public Use
  Company Number: RENA-1000051

PATIENT
  Age: 32 Year
  Sex: Female

DRUGS (3)
  1. RENAGEL [Suspect]
     Indication: HYPERPHOSPHATAEMIA
     Dosage: 6.4 G, QD, ORAL
     Route: 048
     Dates: start: 20060301, end: 20060901
  2. CALCIUM CARBONATE (CALCIUM CARBONATE) [Concomitant]
  3. CALCITRIOL [Concomitant]

REACTIONS (1)
  - COLITIS [None]
